FAERS Safety Report 22138705 (Version 1)
Quarter: 2023Q1

REPORT INFORMATION
  Report Type: Other
  Country: GB (occurrence: GB)
  Receive Date: 20230327
  Receipt Date: 20230327
  Transmission Date: 20230417
  Serious: Yes (Other)
  Sender: FDA-Public Use
  Company Number: None

PATIENT
  Sex: Male

DRUGS (1)
  1. PREDNISOLONE [Suspect]
     Active Substance: PREDNISOLONE
     Indication: Inflammatory bowel disease
     Dosage: REDUCING REGIME; ; (TABLET)
     Route: 065
     Dates: start: 20230127

REACTIONS (1)
  - Tachycardia [None]

NARRATIVE: CASE EVENT DATE: 20230127
